FAERS Safety Report 26099411 (Version 1)
Quarter: 2025Q4

REPORT INFORMATION
  Report Type: Spontaneous
  Country: US (occurrence: US)
  Receive Date: 20251128
  Receipt Date: 20251128
  Transmission Date: 20260117
  Serious: Yes (Hospitalization)
  Sender: GENETIX BIOTHERAPEUTICS INC.
  Company Number: US-GENETIX BIOTHERAPEUTICS INC.-US-BBB-25-00088

PATIENT

DRUGS (1)
  1. ZYNTEGLO [Suspect]
     Active Substance: BETIBEGLOGENE AUTOTEMCEL
     Indication: Thalassaemia beta
     Dosage: UNK, UNK
     Route: 042
     Dates: start: 20250922

REACTIONS (6)
  - Hypophagia [Not Recovered/Not Resolved]
  - Oral infection [Not Recovered/Not Resolved]
  - Pharyngitis [Not Recovered/Not Resolved]
  - Diarrhoea [Not Recovered/Not Resolved]
  - Epistaxis [Not Recovered/Not Resolved]
  - Vomiting [Not Recovered/Not Resolved]

NARRATIVE: CASE EVENT DATE: 20251003
